FAERS Safety Report 6597775-2 (Version None)
Quarter: 2010Q1

REPORT INFORMATION
  Report Type: 
  Country: None (occurrence: None)
  Receive Date: 20100223
  Receipt Date: 20100217
  Transmission Date: 20100710
  Serious: Yes (Other)
  Sender: FDA-Public Use
  Company Number: US-GENENTECH-298315

PATIENT
  Age: 86 Year
  Sex: Female

DRUGS (2)
  1. RITUXAN [Suspect]
     Indication: RHEUMATOID ARTHRITIS
     Dosage: 500 MG, DAYS 1+15
  2. RITUXAN [Suspect]
     Dosage: 1000 MG, DAYS 1+15

REACTIONS (1)
  - CONVULSION [None]
